FAERS Safety Report 8417935-5 (Version None)
Quarter: 2012Q2

REPORT INFORMATION
  Report Type: 
  Country: None (occurrence: None)
  Receive Date: 20120601
  Receipt Date: 20120601
  Transmission Date: 20120825
  Serious: Yes (Life-Threatening, Hospitalization, Other)
  Sender: FDA-Public Use
  Company Number: None

PATIENT
  Age: 57 Year
  Sex: Female
  Weight: 68.0396 kg

DRUGS (2)
  1. DEPAKOTE [Suspect]
     Dosage: 1500 MG 1 TIME DAY ORAL
     Route: 048
  2. HALDOL [Suspect]

REACTIONS (3)
  - EPIGASTRIC DISCOMFORT [None]
  - CATARACT [None]
  - PANCREATITIS [None]
